FAERS Safety Report 9401421 (Version 2)
Quarter: 2013Q3

REPORT INFORMATION
  Report Type: Spontaneous
  Country: JP (occurrence: JP)
  Receive Date: 20130715
  Receipt Date: 20130719
  Transmission Date: 20140515
  Serious: Yes (Other)
  Sender: FDA-Public Use
  Company Number: JP-BAXTER-2013BAX026411

PATIENT
  Age: 79 Year
  Sex: Male

DRUGS (6)
  1. FEIBA FOR INJECTION 500 [Suspect]
     Indication: PROCOAGULANT THERAPY
     Dosage: 1000 U
     Route: 065
  2. PREDNISOLONE /00016202/ [Suspect]
     Indication: IMMUNOSUPPRESSION
     Route: 065
  3. PREDNISOLONE /00016202/ [Suspect]
     Dosage: CONTINUED WITH TAPERED DOSING
     Route: 065
  4. TRANEXAMIC ACID [Suspect]
     Indication: PRODUCT USED FOR UNKNOWN INDICATION
     Route: 065
  5. ASPIRIN [Concomitant]
     Indication: ATRIAL FIBRILLATION
     Dosage: LOW DOSE
     Route: 065
  6. HEPARIN [Concomitant]
     Indication: ATRIAL FIBRILLATION
     Dosage: 12,000 UNITS/DAY
     Route: 065

REACTIONS (1)
  - Drug ineffective [Recovered/Resolved]
